FAERS Safety Report 23672074 (Version 1)
Quarter: 2024Q1

REPORT INFORMATION
  Report Type: Spontaneous
  Country: US (occurrence: US)
  Receive Date: 20240326
  Receipt Date: 20240326
  Transmission Date: 20240410
  Serious: No
  Sender: FDA-Public Use
  Company Number: US-ALCON LABORATORIES-ALC2023US005294

PATIENT
  Age: 70 Year
  Sex: Female

DRUGS (4)
  1. GENTEAL TEARS SEVERE [Suspect]
     Active Substance: HYPROMELLOSE 2910 (4000 MPA.S)
     Indication: Product used for unknown indication
     Dosage: DURING NIGHT TIME
     Route: 047
  2. PATADAY ONCE DAILY RELIEF [Suspect]
     Active Substance: OLOPATADINE HYDROCHLORIDE
     Dosage: 1 DROP IN EACH EYE ONCE A DAY
     Route: 047
  3. PATADAY ONCE DAILY RELIEF [Suspect]
     Active Substance: OLOPATADINE HYDROCHLORIDE
     Indication: Eye pruritus
     Dosage: 1 DROP IN EACH EYE ONCE A DAY
     Route: 047
  4. REFRESH TEARS [Suspect]
     Active Substance: CARBOXYMETHYLCELLULOSE SODIUM
     Indication: Product used for unknown indication
     Dosage: UNK
     Route: 047

REACTIONS (2)
  - Rhinorrhoea [Recovering/Resolving]
  - Product lot number issue [Recovering/Resolving]
